FAERS Safety Report 13777110 (Version 1)
Quarter: 2017Q3

REPORT INFORMATION
  Report Type: Spontaneous
  Country: US (occurrence: US)
  Receive Date: 20170721
  Receipt Date: 20170721
  Transmission Date: 20171127
  Serious: Yes (Hospitalization)
  Sender: FDA-Public Use
  Company Number: None

PATIENT
  Age: 54 Year
  Sex: Female
  Weight: 80 kg

DRUGS (1)
  1. INVOKANA [Suspect]
     Active Substance: CANAGLIFLOZIN
     Dosage: ?          OTHER DOSE:MG;?

REACTIONS (2)
  - Fanconi syndrome [None]
  - Diabetic ketoacidosis [None]

NARRATIVE: CASE EVENT DATE: 20170720
